FAERS Safety Report 11163056 (Version 1)
Quarter: 2015Q2

REPORT INFORMATION
  Report Type: Spontaneous
  Country: US (occurrence: US)
  Receive Date: 20150604
  Receipt Date: 20150604
  Transmission Date: 20150821
  Serious: No
  Sender: FDA-Public Use
  Company Number: US-SA-2015SA034744

PATIENT
  Age: 61 Year
  Sex: Female

DRUGS (3)
  1. LEVEMIR [Concomitant]
     Active Substance: INSULIN DETEMIR
  2. LANTUS SOLOSTAR [Suspect]
     Active Substance: INSULIN GLARGINE
     Indication: TYPE 2 DIABETES MELLITUS
     Dosage: DOSE 14-25 UNITS
     Route: 065
     Dates: start: 201410
  3. SOLOSTAR [Concomitant]
     Active Substance: DEVICE
     Dates: start: 201410

REACTIONS (4)
  - Injection site bruising [Unknown]
  - Joint injury [Unknown]
  - Limb injury [Unknown]
  - Blood glucose increased [Unknown]
